FAERS Safety Report 8059164-3 (Version None)
Quarter: 2012Q1

REPORT INFORMATION
  Report Type: 
  Country: None (occurrence: None)
  Receive Date: 20120120
  Receipt Date: 20110304
  Transmission Date: 20120608
  Serious: Yes (Other)
  Sender: FDA-Public Use
  Company Number: US-BRISTOL-MYERS SQUIBB COMPANY-15591290

PATIENT

DRUGS (3)
  1. TAXOL [Suspect]
     Indication: LUNG ADENOCARCINOMA
  2. AVASTIN [Suspect]
     Indication: LUNG ADENOCARCINOMA
  3. CISPLATIN [Suspect]
     Indication: LUNG ADENOCARCINOMA

REACTIONS (1)
  - NEOPLASM MALIGNANT [None]
